FAERS Safety Report 24885153 (Version 1)
Quarter: 2025Q1

REPORT INFORMATION
  Report Type: Spontaneous
  Country: US (occurrence: US)
  Receive Date: 20250124
  Receipt Date: 20250124
  Transmission Date: 20250408
  Serious: No
  Sender: ELITE
  Company Number: US-ELITEPHARMA-2023ELSPO00175

PATIENT

DRUGS (3)
  1. DEXTROAMPHETAMINE SACCHARATE, AMPHETAMINE ASPARTATE, DEXTROAMPHETAMINE [Suspect]
     Active Substance: AMPHETAMINE ASPARTATE\AMPHETAMINE SULFATE\DEXTROAMPHETAMINE SACCHARATE\DEXTROAMPHETAMINE SULFATE
     Indication: Attention deficit hyperactivity disorder
     Route: 065
     Dates: start: 202310, end: 20231214
  2. DEXTROAMPHETAMINE SACCHARATE, AMPHETAMINE ASPARTATE, DEXTROAMPHETAMINE [Suspect]
     Active Substance: AMPHETAMINE ASPARTATE\AMPHETAMINE SULFATE\DEXTROAMPHETAMINE SACCHARATE\DEXTROAMPHETAMINE SULFATE
     Indication: Narcolepsy
     Route: 065
  3. NICOTINE [Concomitant]
     Active Substance: NICOTINE
     Indication: Product used for unknown indication
     Route: 065

REACTIONS (9)
  - Myalgia [Recovering/Resolving]
  - Anxiety [Recovering/Resolving]
  - Frustration tolerance decreased [Recovering/Resolving]
  - Appetite disorder [Recovering/Resolving]
  - Aggression [Recovering/Resolving]
  - Depressed mood [Recovering/Resolving]
  - Heart rate increased [Recovering/Resolving]
  - Irritability [Recovering/Resolving]
  - Product substitution issue [Unknown]
